FAERS Safety Report 8115033-1 (Version None)
Quarter: 2012Q1

REPORT INFORMATION
  Report Type: 
  Country: None (occurrence: None)
  Receive Date: 20120127
  Receipt Date: 20120117
  Transmission Date: 20120608
  Serious: Yes (Death)
  Sender: FDA-Public Use
  Company Number: 2012030822

PATIENT
  Age: 63 Year
  Sex: Male

DRUGS (3)
  1. IMMUNE GLOBULIN INTRAVENOUS (HUMAN) [Suspect]
     Indication: HISTIOCYTOSIS HAEMATOPHAGIC
     Dosage: 5 G QD
  2. STEROID (CORTICOSTERIODS) [Concomitant]
  3. G-CSF (GRANULOCYTE COLONY STIMULATING FACTOR) [Suspect]

REACTIONS (6)
  - PROTHROMBIN TIME PROLONGED [None]
  - BLOOD BILIRUBIN INCREASED [None]
  - HAEMODYNAMIC INSTABILITY [None]
  - RENAL FAILURE [None]
  - ASCITES [None]
  - HAEMODIALYSIS [None]
